FAERS Safety Report 8190794-4 (Version None)
Quarter: 2012Q1

REPORT INFORMATION
  Report Type: 
  Country: None (occurrence: None)
  Receive Date: 20120307
  Receipt Date: 20120223
  Transmission Date: 20120608
  Serious: Yes (Hospitalization)
  Sender: FDA-Public Use
  Company Number: DE-ELI_LILLY_AND_COMPANY-DE201201008136

PATIENT
  Age: 59 Year
  Sex: Male
  Weight: 95.4 kg

DRUGS (17)
  1. SULTANOL FOR INHALATION [Concomitant]
     Dosage: UNK
     Dates: start: 20120106
  2. MANNITOL [Concomitant]
     Dosage: UNK
     Dates: start: 20120117, end: 20120117
  3. FOLSAN [Concomitant]
     Indication: PROPHYLAXIS
     Dosage: UNK
     Dates: start: 20120113
  4. VITAMIN B-12 [Concomitant]
     Indication: PROPHYLAXIS
     Dosage: UNK
     Dates: start: 20120116
  5. ONDANSETRON [Concomitant]
     Dosage: UNK
     Dates: start: 20120117, end: 20120117
  6. CIXUTUMUMAB [Suspect]
     Indication: NON-SMALL CELL LUNG CANCER
     Dosage: 20 MG/KG, OTHER
     Route: 042
     Dates: start: 20120117
  7. DEXAMETHASONE [Concomitant]
     Indication: PROPHYLAXIS
     Dosage: UNK
     Dates: start: 20120117, end: 20120121
  8. ENALAPRIL MALEATE [Concomitant]
     Dosage: UNK
     Dates: start: 19760101, end: 20120124
  9. BISOPROLOL FUMARATE [Concomitant]
     Dosage: UNK
     Dates: start: 19760101, end: 20120124
  10. ALLOPURINOL [Concomitant]
     Dosage: UNK
     Dates: start: 20110107
  11. ZOPICLON [Concomitant]
     Dosage: UNK
     Dates: start: 20120116, end: 20120116
  12. EMEND [Concomitant]
     Dosage: UNK
     Dates: start: 20120117, end: 20120119
  13. PEMETREXED [Suspect]
     Indication: NON-SMALL CELL LUNG CANCER
     Dosage: 500 MG/M2, OTHER
     Route: 042
     Dates: start: 20120117
  14. METOCLOPRAMIDE [Concomitant]
     Dosage: UNK
     Dates: start: 20120117, end: 20120117
  15. FUROSEMIDE [Concomitant]
     Dosage: UNK
     Dates: start: 20120117, end: 20120117
  16. CISPLATIN [Suspect]
     Indication: NON-SMALL CELL LUNG CANCER
     Dosage: 75 MG/M2, OTHER
     Route: 042
     Dates: start: 20120117, end: 20120117
  17. ATROVENT [Concomitant]
     Dosage: UNK
     Dates: start: 20120106

REACTIONS (1)
  - DEHYDRATION [None]
